FAERS Safety Report 19991265 (Version 1)
Quarter: 2021Q4

REPORT INFORMATION
  Report Type: Spontaneous
  Country: US (occurrence: US)
  Receive Date: 20211025
  Receipt Date: 20211025
  Transmission Date: 20220304
  Serious: Yes (Other)
  Sender: FDA-Public Use
  Company Number: None

PATIENT
  Age: 69 Year
  Sex: Male
  Weight: 65.7 kg

DRUGS (1)
  1. HEMLIBRA [Suspect]
     Active Substance: EMICIZUMAB-KXWH
     Dosage: ?          OTHER FREQUENCY:ONCE WEEKLY;
     Route: 058
     Dates: start: 20210803

REACTIONS (1)
  - Rash erythematous [None]

NARRATIVE: CASE EVENT DATE: 20210917
